FAERS Safety Report 17978893 (Version 4)
Quarter: 2020Q4

REPORT INFORMATION
  Report Type: Report from Study
  Country: US (occurrence: US)
  Receive Date: 20200703
  Receipt Date: 20201026
  Transmission Date: 20210113
  Serious: Yes (Other)
  Sender: FDA-Public Use
  Company Number: NVSC2020US184735

PATIENT
  Sex: Female

DRUGS (1)
  1. GILENYA [Suspect]
     Active Substance: FINGOLIMOD HYDROCHLORIDE
     Indication: MULTIPLE SCLEROSIS
     Dosage: 0.5 MG, QD
     Route: 048
     Dates: start: 20200626, end: 20200626

REACTIONS (7)
  - Memory impairment [Unknown]
  - Physical disability [Unknown]
  - Anxiety [Unknown]
  - Cognitive disorder [Unknown]
  - Heart rate decreased [Unknown]
  - Impatience [Unknown]
  - Depression [Unknown]
